FAERS Safety Report 7725993-6 (Version None)
Quarter: 2011Q3

REPORT INFORMATION
  Report Type: 
  Country: None (occurrence: None)
  Receive Date: 20110902
  Receipt Date: 20110824
  Transmission Date: 20111222
  Serious: Yes (Death, Hospitalization, Other)
  Sender: FDA-Public Use
  Company Number: US-ROCHE-799161

PATIENT
  Sex: Female

DRUGS (2)
  1. HERCEPTIN [Suspect]
     Route: 065
  2. TYKERB [Suspect]
     Indication: BREAST CANCER
     Dosage: 5 TABLETS OF 250 MG EACH
     Route: 048
     Dates: start: 20100424, end: 20110101

REACTIONS (7)
  - DIARRHOEA [None]
  - EJECTION FRACTION DECREASED [None]
  - METASTASES TO ABDOMINAL CAVITY [None]
  - INTESTINAL OBSTRUCTION [None]
  - STOMATITIS [None]
  - CARDIAC FAILURE CONGESTIVE [None]
  - DISEASE PROGRESSION [None]
